FAERS Safety Report 7433684-4 (Version None)
Quarter: 2011Q2

REPORT INFORMATION
  Report Type: 
  Country: None (occurrence: None)
  Receive Date: 20110422
  Receipt Date: 20110411
  Transmission Date: 20111010
  Serious: Yes (Hospitalization)
  Sender: FDA-Public Use
  Company Number: FR-AMGEN-FRASP2011020552

PATIENT
  Age: 71 Year
  Sex: Female

DRUGS (2)
  1. ENBREL [Suspect]
     Indication: RHEUMATOID ARTHRITIS
     Dosage: UNK UNK, 2 TIMES/WK
  2. CORTANCYL [Suspect]
     Indication: RHEUMATOID ARTHRITIS
     Dosage: UNK

REACTIONS (7)
  - DIARRHOEA [None]
  - PYREXIA [None]
  - COUGH [None]
  - ABDOMINAL PAIN [None]
  - SOMNOLENCE [None]
  - BRONCHIAL OBSTRUCTION [None]
  - PNEUMONIA [None]
